FAERS Safety Report 6259988-9 (Version None)
Quarter: 2009Q3

REPORT INFORMATION
  Report Type: 
  Country: None (occurrence: None)
  Receive Date: 20090708
  Receipt Date: 20090703
  Transmission Date: 20100115
  Serious: Yes (Hospitalization)
  Sender: FDA-Public Use
  Company Number: NO-B.I. PHARMACEUTICALS,INC./RIDGEFIELD-2009-SW-00165NO

PATIENT
  Sex: Male

DRUGS (1)
  1. MOBIC [Suspect]
     Indication: OSTEOARTHRITIS
     Route: 048
     Dates: start: 20090618, end: 20090622

REACTIONS (5)
  - ASTHENIA [None]
  - ATAXIA [None]
  - DYSARTHRIA [None]
  - FACIAL PARESIS [None]
  - TRANSIENT ISCHAEMIC ATTACK [None]
